FAERS Safety Report 5334289-1 (Version None)
Quarter: 2007Q2

REPORT INFORMATION
  Report Type: 
  Country: None (occurrence: None)
  Receive Date: 20070525
  Receipt Date: 20070517
  Transmission Date: 20071010
  Serious: Yes (Other)
  Sender: FDA-Public Use
  Company Number: PHBS2007BR08206

PATIENT
  Age: 32 Year
  Sex: Male
  Weight: 96 kg

DRUGS (6)
  1. DECADRON [Concomitant]
     Indication: HEADACHE
     Dosage: 4 MG/DAY
     Route: 048
  2. OMEPRAZOLE [Concomitant]
     Indication: PROPHYLAXIS
     Dosage: 20 MG/DAY
     Route: 048
  3. TRILEPTAL [Suspect]
     Indication: CONVULSION
     Dosage: 300 MG, QD
     Route: 048
     Dates: start: 20050101
  4. TRILEPTAL [Suspect]
     Dosage: 1 TABLET AT 10AM AND ANOTHER ONE AT 11AM
     Route: 048
  5. TRILEPTAL [Suspect]
     Dosage: 300 MG, Q8H
     Route: 048
  6. TRILEPTAL [Suspect]
     Dosage: 900 MG AT ONCE
     Route: 048

REACTIONS (10)
  - ASTHENIA [None]
  - BLINDNESS [None]
  - CONVULSION [None]
  - FALL [None]
  - FEELING ABNORMAL [None]
  - GLIOBLASTOMA MULTIFORME [None]
  - HEADACHE [None]
  - MUSCLE SPASMS [None]
  - SOMNOLENCE [None]
  - SURGERY [None]
